FAERS Safety Report 11642565 (Version 2)
Quarter: 2015Q4

REPORT INFORMATION
  Report Type: Report from Study
  Country: US (occurrence: US)
  Receive Date: 20151020
  Receipt Date: 20151119
  Transmission Date: 20160304
  Serious: Yes (Other)
  Sender: FDA-Public Use
  Company Number: US-AMGEN-USASL2015106983

PATIENT
  Age: 73 Year
  Sex: Male

DRUGS (1)
  1. ENBREL [Suspect]
     Active Substance: ETANERCEPT
     Indication: RHEUMATOID ARTHRITIS
     Dosage: 50 MG, WEEKLY
     Route: 065

REACTIONS (9)
  - Pain in extremity [Unknown]
  - Joint stiffness [Not Recovered/Not Resolved]
  - Hypoaesthesia [Unknown]
  - Back pain [Unknown]
  - Diabetes mellitus [Unknown]
  - Diabetic neuropathy [Unknown]
  - Incorrect product storage [Unknown]
  - Arthropathy [Unknown]
  - Injection site discomfort [Unknown]
